FAERS Safety Report 25945500 (Version 1)
Quarter: 2025Q4

REPORT INFORMATION
  Report Type: Spontaneous
  Country: EU (occurrence: EU)
  Receive Date: 20251021
  Receipt Date: 20251021
  Transmission Date: 20260117
  Serious: Yes (Death, Other)
  Sender: AMGEN
  Company Number: EU-AMGEN-ESPSP2025206535

PATIENT

DRUGS (1)
  1. BLINATUMOMAB [Suspect]
     Active Substance: BLINATUMOMAB
     Indication: Product used for unknown indication
     Dosage: UNK
     Route: 065

REACTIONS (13)
  - Organising pneumonia [Fatal]
  - Pseudomonas infection [Fatal]
  - Respiratory tract infection [Unknown]
  - Candida infection [Unknown]
  - Stenotrophomonas infection [Unknown]
  - Actinomycosis [Unknown]
  - Gastric infection [Unknown]
  - Skin infection [Unknown]
  - Urinary tract infection [Unknown]
  - Bacterial infection [Unknown]
  - Viral infection [Unknown]
  - Fungal infection [Unknown]
  - Lymphopenia [Unknown]
